FAERS Safety Report 8176855-4 (Version None)
Quarter: 2012Q1

REPORT INFORMATION
  Report Type: 
  Country: None (occurrence: None)
  Receive Date: 20120228
  Receipt Date: 20120215
  Transmission Date: 20120608
  Serious: Yes (Hospitalization)
  Sender: FDA-Public Use
  Company Number: TPA2011A08644

PATIENT
  Age: 69 Year
  Sex: Male

DRUGS (4)
  1. ASPIRIN [Concomitant]
  2. EXFORGE [Concomitant]
  3. GLICLAZIDE (GLICLAZIDE) [Concomitant]
  4. ADENURIC (FEBUXOSTAT) [Suspect]
     Indication: HYPERURICAEMIA
     Dosage: 80 MG (80 MG,1 IN 1 D) ORAL
     Route: 048
     Dates: start: 20111017, end: 20111119

REACTIONS (2)
  - HYPOSIDERAEMIA [None]
  - MICROCYTIC ANAEMIA [None]
